FAERS Safety Report 6277919-2 (Version None)
Quarter: 2009Q3

REPORT INFORMATION
  Report Type: 
  Country: None (occurrence: None)
  Receive Date: 20090722
  Receipt Date: 20090714
  Transmission Date: 20100115
  Serious: Yes (Other)
  Sender: FDA-Public Use
  Company Number: CA-ASTRAZENECA-2009UW19727

PATIENT
  Sex: Female

DRUGS (12)
  1. SYMBICORT [Suspect]
     Route: 055
  2. SYMBICORT [Suspect]
     Dosage: 4 PUFFS TWICE A DAY
     Route: 055
  3. AVAPRO [Concomitant]
  4. SPIRIVA [Concomitant]
  5. RABEPRAZOLE SODIUM [Concomitant]
  6. LIPITOR [Concomitant]
  7. NORTRIPTYLINE HCL [Concomitant]
  8. TIAZAC [Concomitant]
  9. NAPROXEN [Concomitant]
  10. ZOPICLONE [Concomitant]
  11. TYLENOL W/ CODEINE NO. 3 [Concomitant]
  12. FUCIDIN CREAM [Concomitant]

REACTIONS (3)
  - BREAST CANCER [None]
  - CONTUSION [None]
  - SKIN EXFOLIATION [None]
